FAERS Safety Report 20152426 (Version 1)
Quarter: 2021Q4

REPORT INFORMATION
  Report Type: Spontaneous
  Country: US (occurrence: None)
  Receive Date: 20211206
  Receipt Date: 20211206
  Transmission Date: 20220303
  Serious: Yes (Death)
  Sender: FDA-Public Use
  Company Number: None

PATIENT
  Age: 66 Year
  Sex: Female

DRUGS (1)
  1. ERLOTINIB [Suspect]
     Active Substance: ERLOTINIB
     Indication: Cholangiocarcinoma
     Dosage: FREQUENCY : DAILY;?
     Route: 048
     Dates: start: 20210430, end: 20210625

REACTIONS (1)
  - Death [None]

NARRATIVE: CASE EVENT DATE: 20211206
